FAERS Safety Report 8547187-7 (Version None)
Quarter: 2012Q3

REPORT INFORMATION
  Report Type: 
  Country: None (occurrence: None)
  Receive Date: 20120727
  Receipt Date: 20120224
  Transmission Date: 20120928
  Serious: No
  Sender: FDA-Public Use
  Company Number: US-ASTRAZENECA-2012SE13175

PATIENT
  Age: 53 Year
  Sex: Male
  Weight: 77.1 kg

DRUGS (5)
  1. SEROQUEL [Suspect]
     Indication: FEELING OF RELAXATION
     Route: 048
  2. LISINOPRIL [Concomitant]
  3. GLIPIZIDE [Concomitant]
  4. METFORMIN HYDROCHLORIDE [Concomitant]
  5. ATENOLOL [Concomitant]

REACTIONS (3)
  - OFF LABEL USE [None]
  - INSOMNIA [None]
  - INCORRECT DOSE ADMINISTERED [None]
